FAERS Safety Report 5914644-9 (Version None)
Quarter: 2008Q4

REPORT INFORMATION
  Report Type: 
  Country: None (occurrence: None)
  Receive Date: 20081008
  Receipt Date: 20080924
  Transmission Date: 20090506
  Serious: Yes (Hospitalization)
  Sender: FDA-Public Use
  Company Number: 230400J07USA

PATIENT
  Age: 55 Year
  Sex: Female
  Weight: 49 kg

DRUGS (4)
  1. REBIF [Suspect]
     Indication: MULTIPLE SCLEROSIS
     Dosage: 44 MCG, 3 IN 1 WEEKS, SUBCUTANEOUS
     Route: 058
     Dates: start: 20061001, end: 20070101
  2. DEPAKOTE [Concomitant]
  3. UNSPECIFIED MEDICATION(ALL OTHER THERAPEUTIC PRODUCTS) [Concomitant]
  4. ZOCOR [Concomitant]

REACTIONS (5)
  - ACUTE MYOCARDIAL INFARCTION [None]
  - CONVULSION [None]
  - CORONARY ARTERY DISEASE [None]
  - INJECTION SITE PAIN [None]
  - INJECTION SITE REACTION [None]
